FAERS Safety Report 17428091 (Version 6)
Quarter: 2020Q4

REPORT INFORMATION
  Report Type: Report from Study
  Country: AU (occurrence: AU)
  Receive Date: 20200217
  Receipt Date: 20201012
  Transmission Date: 20210113
  Serious: Yes (Other)
  Sender: FDA-Public Use
  Company Number: AU-SHIRE-AU202004394

PATIENT

DRUGS (4)
  1. TEDUGLUTIDE [Suspect]
     Active Substance: TEDUGLUTIDE
     Indication: PRODUCT USED FOR UNKNOWN INDICATION
     Dosage: 0.38 MILLILITER, 1X/DAY:QD
     Route: 058
  2. TEDUGLUTIDE [Suspect]
     Active Substance: TEDUGLUTIDE
     Indication: PRODUCT USED FOR UNKNOWN INDICATION
     Dosage: 0.38 MILLILITER, 1X/DAY:QD
     Route: 058
  3. TEDUGLUTIDE [Suspect]
     Active Substance: TEDUGLUTIDE
     Indication: PRODUCT USED FOR UNKNOWN INDICATION
     Dosage: 0.38 MILLILITER, 1X/DAY:QD
     Route: 058
  4. TEDUGLUTIDE [Suspect]
     Active Substance: TEDUGLUTIDE
     Indication: PRODUCT USED FOR UNKNOWN INDICATION
     Dosage: 0.38 MILLILITER, 1X/DAY:QD
     Route: 058

REACTIONS (22)
  - Nephrolithiasis [Recovered/Resolved]
  - Stress [Unknown]
  - Cholelithiasis [Unknown]
  - Pain [Unknown]
  - Gastrointestinal sounds abnormal [Unknown]
  - Dyspnoea [Unknown]
  - Headache [Unknown]
  - Weight decreased [Unknown]
  - Insomnia [Unknown]
  - Abdominal distension [Unknown]
  - Choking [Unknown]
  - Disturbance in attention [Unknown]
  - Nausea [Unknown]
  - Product leakage [Unknown]
  - Injection site pain [Unknown]
  - Product use complaint [Unknown]
  - Needle issue [Unknown]
  - Intestinal obstruction [Unknown]
  - Abdominal discomfort [Unknown]
  - Gastrooesophageal reflux disease [Unknown]
  - Asthenia [Unknown]
  - Vomiting [Recovered/Resolved]

NARRATIVE: CASE EVENT DATE: 20200212
